FAERS Safety Report 19723747 (Version 1)
Quarter: 2021Q3

REPORT INFORMATION
  Report Type: Spontaneous
  Country: US (occurrence: US)
  Receive Date: 20210820
  Receipt Date: 20210820
  Transmission Date: 20211014
  Serious: No
  Sender: FDA-Public Use
  Company Number: US-TEVA-2021-US-1941463

PATIENT
  Age: 72 Year
  Sex: Male

DRUGS (1)
  1. TESTOSTERONE. [Suspect]
     Active Substance: TESTOSTERONE
     Indication: BLOOD TESTOSTERONE DECREASED
     Dosage: 5 GRAMS PER UNIT DOSE
     Route: 065

REACTIONS (7)
  - Arthralgia [Recovered/Resolved]
  - Insomnia [Recovered/Resolved]
  - Gait inability [Recovered/Resolved]
  - Joint swelling [Recovered/Resolved]
  - Blood testosterone free increased [Recovered/Resolved]
  - Prescription drug used without a prescription [Unknown]
  - Peripheral swelling [Not Recovered/Not Resolved]
